FAERS Safety Report 12356406 (Version 2)
Quarter: 2017Q1

REPORT INFORMATION
  Report Type: Spontaneous
  Country: US (occurrence: US)
  Receive Date: 20160511
  Receipt Date: 20170217
  Transmission Date: 20170428
  Serious: Yes (Hospitalization, Other)
  Sender: FDA-Public Use
  Company Number: US-ELI_LILLY_AND_COMPANY-US201605000572

PATIENT
  Age: 63 Year
  Sex: Female

DRUGS (6)
  1. CYMBALTA [Suspect]
     Active Substance: DULOXETINE HYDROCHLORIDE
     Indication: PAIN
     Dosage: UNK, UNKNOWN
     Route: 065
  2. CYMBALTA [Suspect]
     Active Substance: DULOXETINE HYDROCHLORIDE
     Indication: DEPRESSION
  3. BENAZEPRIL [Concomitant]
     Active Substance: BENAZEPRIL HYDROCHLORIDE
  4. ACETAMINOPHEN. [Concomitant]
     Active Substance: ACETAMINOPHEN
  5. VILAZODONE [Concomitant]
     Active Substance: VILAZODONE
  6. XANAX [Suspect]
     Active Substance: ALPRAZOLAM
     Indication: PRODUCT USED FOR UNKNOWN INDICATION
     Dosage: UNK, UNKNOWN
     Route: 065

REACTIONS (24)
  - Agitation [Unknown]
  - Suicidal ideation [Unknown]
  - Dysphoria [Unknown]
  - Hypothermia [Unknown]
  - Sensory disturbance [Unknown]
  - Hypomania [Unknown]
  - Nightmare [Unknown]
  - Paraesthesia [Unknown]
  - Drug withdrawal syndrome [Unknown]
  - Diarrhoea [Unknown]
  - Hyperhidrosis [Unknown]
  - Irritability [Unknown]
  - Suicide attempt [Unknown]
  - Vertigo [Unknown]
  - Nausea [Unknown]
  - Overdose [Unknown]
  - Mood swings [Unknown]
  - Confusional state [Unknown]
  - Sleep disorder [Unknown]
  - Dizziness [Unknown]
  - Affect lability [Unknown]
  - Fatigue [Unknown]
  - Anxiety [Unknown]
  - Intentional product misuse [Unknown]

NARRATIVE: CASE EVENT DATE: 201505
